FAERS Safety Report 8023670-8 (Version None)
Quarter: 2012Q1

REPORT INFORMATION
  Report Type: 
  Country: None (occurrence: None)
  Receive Date: 20120104
  Receipt Date: 20120104
  Transmission Date: 20120608
  Serious: Yes (Life-Threatening, Disabling)
  Sender: FDA-Public Use
  Company Number: None

PATIENT
  Weight: 56.6996 kg

DRUGS (2)
  1. DOXIL [Suspect]
     Indication: BREAST CANCER
     Dosage: UNKNOWN 3 WEEKS IV
     Route: 042
     Dates: start: 20071001
  2. DOXIL [Suspect]
     Indication: BREAST CANCER
     Dosage: UNKNOWN 3 WEEKS IV
     Route: 042
     Dates: start: 20070911

REACTIONS (9)
  - APHTHOUS STOMATITIS [None]
  - OESOPHAGITIS [None]
  - SKIN EXFOLIATION [None]
  - NAUSEA [None]
  - BLISTER [None]
  - ULCER [None]
  - CANDIDIASIS [None]
  - RASH [None]
  - STOMATITIS [None]
